FAERS Safety Report 25170930 (Version 2)
Quarter: 2025Q2

REPORT INFORMATION
  Report Type: Report from Study
  Country: ES (occurrence: ES)
  Receive Date: 20250408
  Receipt Date: 20250625
  Transmission Date: 20250717
  Serious: Yes (Death, Other)
  Sender: AUROBINDO
  Company Number: ES-002147023-NVSC2025ES048133

PATIENT

DRUGS (4)
  1. MYCOPHENOLIC ACID [Suspect]
     Active Substance: MYCOPHENOLIC ACID
     Indication: Immunosuppressant drug therapy
     Route: 065
  2. BASILIXIMAB [Suspect]
     Active Substance: BASILIXIMAB
     Indication: Immunosuppressant drug therapy
     Route: 065
  3. TACROLIMUS [Suspect]
     Active Substance: TACROLIMUS
     Indication: Immunosuppressant drug therapy
     Route: 065
  4. METHYLPREDNISOLONE [Suspect]
     Active Substance: METHYLPREDNISOLONE
     Indication: Immunosuppressant drug therapy
     Route: 065

REACTIONS (2)
  - Pulmonary mucormycosis [Fatal]
  - Drug ineffective [Unknown]
